FAERS Safety Report 10541503 (Version 1)
Quarter: 2014Q4

REPORT INFORMATION
  Report Type: Spontaneous
  Country: US (occurrence: US)
  Receive Date: 20141024
  Receipt Date: 20141024
  Transmission Date: 20150529
  Serious: Yes (Other)
  Sender: FDA-Public Use
  Company Number: US-JNJFOC-20141014839

PATIENT
  Age: 75 Year
  Sex: Female

DRUGS (5)
  1. ULTRAM [Concomitant]
     Active Substance: TRAMADOL HYDROCHLORIDE
  2. IMBRUVICA [Suspect]
     Active Substance: IBRUTINIB
     Indication: WALDENSTROM^S MACROGLOBULINAEMIA
     Route: 048
     Dates: start: 20141007
  3. AMITRIPTYLINE [Concomitant]
     Active Substance: AMITRIPTYLINE
  4. FENOFIBRATE. [Concomitant]
     Active Substance: FENOFIBRATE
  5. CENTRUM NOS [Concomitant]

REACTIONS (4)
  - Colostomy [Unknown]
  - Dizziness [Unknown]
  - Diarrhoea [Unknown]
  - Faecal volume increased [Unknown]

NARRATIVE: CASE EVENT DATE: 201410
